FAERS Safety Report 9657084 (Version 1)
Quarter: 2013Q4

REPORT INFORMATION
  Report Type: Spontaneous
  Country: FR (occurrence: FR)
  Receive Date: 20131030
  Receipt Date: 20131030
  Transmission Date: 20140711
  Serious: Yes (Other)
  Sender: FDA-Public Use
  Company Number: PHHY2013FR119435

PATIENT
  Sex: Male

DRUGS (19)
  1. CLOZAPINE [Suspect]
     Dosage: 450 MG, QD
     Dates: start: 1995
  2. CLOZAPINE [Suspect]
     Dosage: 50 MG, QD
     Dates: start: 1995
  3. CLOZAPINE [Suspect]
     Dosage: 500 MG, UNK
     Dates: start: 2008
  4. CARBAMAZEPINE [Suspect]
     Dosage: 800 MG, QD
     Dates: start: 1988, end: 1993
  5. CARBAMAZEPINE [Suspect]
     Dosage: 800 MG, QD
     Dates: start: 1994, end: 1998
  6. HALOPERIDOL [Suspect]
     Indication: HALLUCINATION
     Dosage: 60 MG, UNK
     Dates: start: 1995, end: 1997
  7. HALOPERIDOL [Suspect]
     Dosage: 15 MG, QD
     Dates: start: 2008
  8. CLONAZEPAM [Concomitant]
     Dosage: 10 MG, QD
     Dates: start: 1982, end: 1988
  9. PHENOBARBITAL [Concomitant]
     Dosage: 100 MG, QD
     Dates: start: 198804, end: 198807
  10. PHENOBARBITAL [Concomitant]
     Dosage: 50 MG, QD
     Dates: start: 198807, end: 1994
  11. LAMOTRIGINE [Concomitant]
     Dosage: 400 MG, QD
     Dates: start: 2001
  12. LAMOTRIGINE [Concomitant]
     Dosage: 300 MG, QD
     Dates: start: 2008
  13. VIGABATRIN [Concomitant]
     Dosage: 1500 MG, QD
     Dates: start: 1998, end: 2001
  14. CLOBAZAM [Concomitant]
     Dosage: 20 MG, QD
     Dates: start: 1988
  15. CLOBAZAM [Concomitant]
     Dosage: 30 MG, QD
     Dates: start: 1994, end: 2008
  16. CLOBAZAM [Concomitant]
     Dosage: 15 MG, UNK
     Dates: start: 2008
  17. ZONISAMIDE [Concomitant]
     Dosage: 300 MG, QD
     Dates: start: 2004, end: 2007
  18. CHLORPROMAZINE [Concomitant]
     Dosage: 200 MG, QD
     Dates: start: 1995, end: 2001
  19. VALPROIC ACID [Concomitant]
     Dosage: 2500 MG, QD
     Dates: start: 198804, end: 198804

REACTIONS (11)
  - Delusional disorder, unspecified type [Unknown]
  - Hypothalamo-pituitary disorder [Unknown]
  - Anxiety [Unknown]
  - Mood altered [Unknown]
  - Aggression [Unknown]
  - Acute psychosis [Recovered/Resolved]
  - Epilepsy [Recovered/Resolved]
  - Temporal lobe epilepsy [Unknown]
  - Convulsion [Recovered/Resolved]
  - Memory impairment [Unknown]
  - Antipsychotic drug level increased [Unknown]
